FAERS Safety Report 6719356-X (Version None)
Quarter: 2010Q2

REPORT INFORMATION
  Report Type: 
  Country: None (occurrence: None)
  Receive Date: 20100511
  Receipt Date: 20100430
  Transmission Date: 20101027
  Serious: Yes (Other)
  Sender: FDA-Public Use
  Company Number: CA-JNJFOC-20100500788

PATIENT
  Sex: Female
  Weight: 59 kg

DRUGS (4)
  1. REMICADE [Suspect]
     Indication: CROHN'S DISEASE
     Dosage: 7TH INFUSION TEMPORARILY INTERRUPTED
     Route: 042
  2. REMICADE [Suspect]
     Route: 042
  3. SULFASALAZINE [Concomitant]
  4. PREMEDICATION [Concomitant]

REACTIONS (3)
  - FEELING HOT [None]
  - FLUSHING [None]
  - SPEECH DISORDER [None]
